FAERS Safety Report 17798246 (Version 1)
Quarter: 2020Q2

REPORT INFORMATION
  Report Type: Spontaneous
  Country: PK (occurrence: PK)
  Receive Date: 20200518
  Receipt Date: 20200518
  Transmission Date: 20200714
  Serious: Yes (Life-Threatening, Hospitalization, Other)
  Sender: FDA-Public Use
  Company Number: PK-ACCORD-181990

PATIENT
  Age: 43 Year
  Sex: Male

DRUGS (8)
  1. PREDNISOLONE. [Suspect]
     Active Substance: PREDNISOLONE
     Indication: IMMUNOSUPPRESSANT DRUG THERAPY
     Dosage: LOW-DOSE
     Dates: start: 201510
  2. NITAZOXANIDE [Concomitant]
     Active Substance: NITAZOXANIDE
     Indication: GASTROENTERITIS CRYPTOSPORIDIAL
  3. TACROLIMUS. [Suspect]
     Active Substance: TACROLIMUS
     Indication: IMMUNOSUPPRESSANT DRUG THERAPY
     Dates: start: 201510
  4. EVEROLIMUS. [Suspect]
     Active Substance: EVEROLIMUS
     Indication: IMMUNOSUPPRESSANT DRUG THERAPY
     Dates: start: 201510
  5. VALGANCICLOVIR/VALGANCICLOVIR HYDROCHLORIDE [Concomitant]
     Active Substance: VALGANCICLOVIR
     Indication: PROPHYLAXIS
     Dates: start: 201510
  6. MYCOPHENOLIC ACID. [Suspect]
     Active Substance: MYCOPHENOLIC ACID
     Indication: IMMUNOSUPPRESSANT DRUG THERAPY
     Dates: start: 201510
  7. SULFAMETHOXAZOLE/TRIMETHOPRIM [Concomitant]
     Active Substance: SULFAMETHOXAZOLE\TRIMETHOPRIM
     Indication: PROPHYLAXIS
     Dates: start: 201510
  8. NITAZOXANIDE [Concomitant]
     Active Substance: NITAZOXANIDE
     Indication: ESCHERICHIA BACTERAEMIA

REACTIONS (6)
  - Cryptosporidiosis infection [Recovering/Resolving]
  - Kaposi^s varicelliform eruption [Recovered/Resolved]
  - Escherichia bacteraemia [Recovering/Resolving]
  - Varicella [Recovered/Resolved]
  - Herpes simplex [Recovered/Resolved]
  - Diarrhoea infectious [Recovering/Resolving]

NARRATIVE: CASE EVENT DATE: 2015
